FAERS Safety Report 5750813-9 (Version None)
Quarter: 2008Q2

REPORT INFORMATION
  Report Type: 
  Country: None (occurrence: None)
  Receive Date: 20080528
  Receipt Date: 20080519
  Transmission Date: 20081010
  Serious: Yes (Hospitalization)
  Sender: FDA-Public Use
  Company Number: A0729286A

PATIENT
  Age: 45 Year
  Sex: Male
  Weight: 70 kg

DRUGS (2)
  1. LAPATINIB [Suspect]
     Dosage: 1500MG PER DAY
     Route: 048
     Dates: start: 20080331
  2. CISPLATIN [Suspect]
     Dosage: 100MGM2 CYCLIC
     Route: 042
     Dates: start: 20080409

REACTIONS (1)
  - NEUTROPENIA [None]
